FAERS Safety Report 17986656 (Version 1)
Quarter: 2020Q3

REPORT INFORMATION
  Report Type: Spontaneous
  Country: US (occurrence: US)
  Receive Date: 20200706
  Receipt Date: 20200706
  Transmission Date: 20201103
  Serious: No
  Sender: FDA-Public Use
  Company Number: US-PURDUE-USA-2019-0147722

PATIENT
  Age: 50 Year
  Sex: Female
  Weight: 47.62 kg

DRUGS (1)
  1. DRONABINOL CAPSULES [Suspect]
     Active Substance: DRONABINOL
     Indication: NAUSEA
     Dosage: 10 MG, TID PRN
     Route: 048
     Dates: start: 201905

REACTIONS (1)
  - Eructation [Unknown]
